FAERS Safety Report 15391865 (Version 1)
Quarter: 2018Q4

REPORT INFORMATION
  Report Type: Spontaneous
  Country: US (occurrence: US)
  Receive Date: 20180917
  Receipt Date: 20180917
  Transmission Date: 20190204
  Serious: Yes (Death)
  Sender: FDA-Public Use
  Company Number: US-PFIZER INC-2018372979

PATIENT
  Age: 33 Year
  Sex: Female

DRUGS (5)
  1. VORICONAZOLE. [Suspect]
     Active Substance: VORICONAZOLE
     Indication: FUNGAL INFECTION
     Dosage: UNK (SYSTEMIC)
     Route: 042
  2. PIPERACILLIN/TAZOBACTAM [Concomitant]
     Active Substance: PIPERACILLIN SODIUM\TAZOBACTAM SODIUM
     Indication: PNEUMONIA KLEBSIELLA
     Dosage: UNK
     Route: 042
  3. DAKIN [SODIUM HYPOCHLORITE] [Suspect]
     Active Substance: SODIUM HYPOCHLORITE
     Indication: FUNGAL INFECTION
     Dosage: UNK
     Route: 061
  4. SILVER NITRATE. [Suspect]
     Active Substance: SILVER NITRATE
     Indication: FUNGAL INFECTION
     Dosage: UNK
     Route: 061
  5. PIPERACILLIN/TAZOBACTAM [Concomitant]
     Active Substance: PIPERACILLIN SODIUM\TAZOBACTAM SODIUM
     Indication: PSEUDOMONAS INFECTION
     Dosage: UNK
     Route: 042

REACTIONS (3)
  - Septic shock [Fatal]
  - Drug ineffective [Fatal]
  - Fungaemia [Fatal]
